FAERS Safety Report 4909524-1 (Version None)
Quarter: 2006Q1

REPORT INFORMATION
  Report Type: 
  Country: None (occurrence: None)
  Receive Date: 20060213
  Receipt Date: 20050930
  Transmission Date: 20060701
  Serious: Yes (Hospitalization, Disabling, Other)
  Sender: FDA-Public Use
  Company Number: PR-MERCK-0510USA01655

PATIENT
  Age: 42 Year
  Sex: Female
  Weight: 76 kg

DRUGS (3)
  1. VIOXX [Suspect]
     Indication: BACK PAIN
     Route: 048
     Dates: start: 19990101, end: 20040101
  2. VIOXX [Suspect]
     Indication: DYSMENORRHOEA
     Route: 048
     Dates: start: 19990101, end: 20040101
  3. TYLENOL (CAPLET) [Concomitant]
     Route: 065

REACTIONS (22)
  - AFFECT LABILITY [None]
  - ANGINA PECTORIS [None]
  - ANXIETY [None]
  - ARRHYTHMIA [None]
  - BURSITIS [None]
  - CEREBROVASCULAR ACCIDENT [None]
  - CHEST PAIN [None]
  - DIZZINESS [None]
  - INTERVERTEBRAL DISC PROTRUSION [None]
  - MAJOR DEPRESSION [None]
  - MYOCARDIAL INFARCTION [None]
  - ORGAN FAILURE [None]
  - OSTEOARTHRITIS [None]
  - OVARIAN CYST [None]
  - PITUITARY TUMOUR [None]
  - PULMONARY EMBOLISM [None]
  - RATHKE'S CLEFT CYST [None]
  - RENAL CYST [None]
  - TACHYCARDIA [None]
  - THROMBOSIS [None]
  - UTERINE NEOPLASM [None]
  - VOCAL CORD THICKENING [None]
